FAERS Safety Report 8020518-2 (Version None)
Quarter: 2012Q1

REPORT INFORMATION
  Report Type: 
  Country: None (occurrence: None)
  Receive Date: 20120103
  Receipt Date: 20111229
  Transmission Date: 20120608
  Serious: Yes (Other)
  Sender: FDA-Public Use
  Company Number: US-ROCHE-1026292

PATIENT
  Sex: Male

DRUGS (1)
  1. KLONOPIN [Suspect]
     Indication: PRODUCT USED FOR UNKNOWN INDICATION

REACTIONS (7)
  - COORDINATION ABNORMAL [None]
  - SOMNOLENCE [None]
  - DEPRESSION [None]
  - FATIGUE [None]
  - FALL [None]
  - DIZZINESS [None]
  - SYNCOPE [None]
